FAERS Safety Report 7661126-2 (Version None)
Quarter: 2011Q3

REPORT INFORMATION
  Report Type: 
  Country: None (occurrence: None)
  Receive Date: 20110805
  Receipt Date: 20100928
  Transmission Date: 20111222
  Serious: No
  Sender: FDA-Public Use
  Company Number: US-ABBOTT-10P-163-0675323-00

PATIENT
  Age: 76 Year
  Sex: Female

DRUGS (2)
  1. NIASPAN [Suspect]
     Indication: JOINT STIFFNESS
     Dates: start: 20090101
  2. NIASPAN [Suspect]
     Dates: start: 20100501, end: 20100921

REACTIONS (2)
  - GLOSSITIS [None]
  - FLUSHING [None]
